FAERS Safety Report 6441205-8 (Version None)
Quarter: 2009Q4

REPORT INFORMATION
  Report Type: 
  Country: None (occurrence: None)
  Receive Date: 20091116
  Receipt Date: 20091102
  Transmission Date: 20100525
  Serious: Yes (Life-Threatening, Other)
  Sender: FDA-Public Use
  Company Number: FR-PFIZER INC-2008044801

PATIENT
  Age: 58 Year
  Sex: Male
  Weight: 61 kg

DRUGS (2)
  1. SUTENT [Suspect]
     Indication: RENAL CANCER METASTATIC
     Dates: start: 20071201
  2. NEBIVOLOL [Concomitant]
     Dosage: HALF TABLET PER DAY
     Route: 048
     Dates: start: 20070701

REACTIONS (8)
  - ANAEMIA [None]
  - AORTIC DISSECTION [None]
  - CHEST PAIN [None]
  - DISEASE PROGRESSION [None]
  - DRY MOUTH [None]
  - DYSGEUSIA [None]
  - NAUSEA [None]
  - RENAL CANCER METASTATIC [None]
